FAERS Safety Report 11583605 (Version 1)
Quarter: 2015Q4

REPORT INFORMATION
  Report Type: Spontaneous
  Country: RU (occurrence: RU)
  Receive Date: 20151001
  Receipt Date: 20151001
  Transmission Date: 20160304
  Serious: Yes (Other)
  Sender: FDA-Public Use
  Company Number: RU-BAYER-2015-277707

PATIENT
  Age: 27 Year
  Sex: Female

DRUGS (1)
  1. YARINA [Suspect]
     Active Substance: DROSPIRENONE\ETHINYL ESTRADIOL
     Dosage: UNK
     Route: 048

REACTIONS (6)
  - Abdominal pain [None]
  - Amenorrhoea [None]
  - Ovarian cyst [None]
  - Maternal exposure before pregnancy [None]
  - Back pain [None]
  - Abortion spontaneous [None]

NARRATIVE: CASE EVENT DATE: 201506
